FAERS Safety Report 15767808 (Version 3)
Quarter: 2019Q1

REPORT INFORMATION
  Report Type: Report from Study
  Country: CN (occurrence: CN)
  Receive Date: 20181227
  Receipt Date: 20190103
  Transmission Date: 20190417
  Serious: Yes (Death)
  Sender: FDA-Public Use
  Company Number: CN-EISAI MEDICAL RESEARCH-EC-2018-049716

PATIENT
  Age: 55 Year
  Sex: Male
  Weight: 65.5 kg

DRUGS (9)
  1. AMOXICILLIN SODIUM AND CLAVULANATE POTASSIUM [Concomitant]
     Active Substance: AMOXICILLIN\CLAVULANATE POTASSIUM
  2. CEFOXITIN SODIUM [Concomitant]
     Active Substance: CEFOXITIN SODIUM
  3. METOCLOPRAMIDE. [Concomitant]
     Active Substance: METOCLOPRAMIDE
  4. LENVATINIB [Suspect]
     Active Substance: LENVATINIB
     Indication: OESOPHAGEAL CARCINOMA
     Route: 048
     Dates: start: 20180822, end: 20181220
  5. OXYCODONE AND ACETAMINOPHEN [Concomitant]
     Active Substance: ACETAMINOPHEN\OXYCODONE HYDROCHLORIDE
  6. DOMPERIDONE [Concomitant]
     Active Substance: DOMPERIDONE
  7. LEVOTHYROXINE. [Concomitant]
     Active Substance: LEVOTHYROXINE
  8. IBUPROFEN SUSTAINED-RELEASE [Concomitant]
  9. DEXAMETHASONE. [Concomitant]
     Active Substance: DEXAMETHASONE

REACTIONS (1)
  - Death [Fatal]

NARRATIVE: CASE EVENT DATE: 20181220
